FAERS Safety Report 9782550 (Version 3)
Quarter: 2014Q1

REPORT INFORMATION
  Report Type: Report from Study
  Country: NL (occurrence: NL)
  Receive Date: 20131226
  Receipt Date: 20140107
  Transmission Date: 20141002
  Serious: Yes (Other)
  Sender: FDA-Public Use
  Company Number: NL-B.I. PHARMACEUTICALS,INC./RIDGEFIELD-2013-BI-43103NL

PATIENT
  Age: 72 Year
  Sex: Female

DRUGS (7)
  1. MICARDIS [Suspect]
     Indication: HYPERTENSION
     Dosage: 40 MG
     Dates: start: 200809, end: 2011
  2. MICARDIS PLUS [Suspect]
     Indication: HYPERTENSION
     Dosage: DOSE PER APPLICATION + DAILY DOSE: 80/12.5 MG
     Dates: start: 201109, end: 20131218
  3. OMEPRAZOL [Suspect]
     Indication: PROPHYLAXIS AGAINST GASTROINTESTINAL ULCER
     Dosage: 20 MG
     Route: 048
  4. HUMIRA 40 [Concomitant]
     Indication: RHEUMATIC DISORDER
     Dosage: DOSE OF ONE APPLICATION: 50MG/ML, ROUTE: INJECTION
     Dates: start: 2007
  5. METHOTREXAAT [Concomitant]
     Indication: RHEUMATIC DISORDER
     Dosage: 2.1429 MG
     Route: 048
  6. FOLIC ACID [Concomitant]
     Indication: RHEUMATIC DISORDER
     Dosage: 1.4286 MG
     Route: 048
  7. PIROXICAM [Concomitant]
     Indication: RHEUMATIC DISORDER
     Dosage: NO. OF APPLICATION: 1-2  IN 1DAYS
     Route: 048

REACTIONS (1)
  - Interstitial lung disease [Unknown]
